FAERS Safety Report 9646016 (Version 2)
Quarter: 2014Q3

REPORT INFORMATION
  Report Type: Report from Study
  Country: JP (occurrence: JP)
  Receive Date: 20131025
  Receipt Date: 20140806
  Transmission Date: 20150326
  Serious: Yes (Hospitalization)
  Sender: FDA-Public Use
  Company Number: JP-BRISTOL-MYERS SQUIBB COMPANY-19649573

PATIENT
  Age: 40 Year
  Sex: Male

DRUGS (8)
  1. NORVIR [Suspect]
     Active Substance: RITONAVIR
     Indication: HIV INFECTION
     Dosage: 21DEC04-21JAN05?22JUN05-10MAY07?19JAN07-30JUN11
     Route: 048
     Dates: start: 20041221, end: 20110630
  2. VIREAD [Suspect]
     Active Substance: TENOFOVIR DISOPROXIL FUMARATE
     Indication: HIV INFECTION
     Route: 048
     Dates: start: 20050802, end: 20071213
  3. STOCRIN TABS [Suspect]
     Active Substance: EFAVIRENZ
     Indication: HIV INFECTION
     Dosage: 14JUN04-21DEC04?9DEC05-11JUL11?17JUL09-16OCT09
     Route: 048
     Dates: start: 20040614, end: 20091016
  4. ISENTRESS [Suspect]
     Active Substance: RALTEGRAVIR POTASSIUM
     Indication: HIV INFECTION
     Route: 048
     Dates: start: 20091016, end: 20100930
  5. KALETRA [Suspect]
     Active Substance: LOPINAVIR\RITONAVIR
     Indication: HIV INFECTION
     Dosage: 14MAY04-30MAY04:6DF/DAY?11MAY07-16OCT09:4DF/DAY
     Route: 048
     Dates: start: 20040514, end: 20091016
  6. TRUVADA [Suspect]
     Active Substance: EMTRICITABINE\TENOFOVIR DISOPROXIL FUMARATE
     Indication: HIV INFECTION
     Dosage: 14DEC07-01OCT10?1JUL11
     Route: 048
     Dates: start: 20071214
  7. EPIVIR [Suspect]
     Active Substance: LAMIVUDINE
     Indication: HIV INFECTION
     Dosage: 22JUL05-2AUG05:150MG; 2/DAY?3AUG05-13DEC07:300MG/DAY
     Route: 048
     Dates: start: 20050722, end: 20071213
  8. REYATAZ [Suspect]
     Active Substance: ATAZANAVIR SULFATE
     Indication: HIV INFECTION
     Dosage: 21DEC04-21JAN05?22JUN05-10MAY07
     Route: 048
     Dates: start: 20041221, end: 20070510

REACTIONS (1)
  - Diabetes mellitus [Not Recovered/Not Resolved]

NARRATIVE: CASE EVENT DATE: 200703
